FAERS Safety Report 5927118-6 (Version None)
Quarter: 2008Q4

REPORT INFORMATION
  Report Type: 
  Country: None (occurrence: None)
  Receive Date: 20081022
  Receipt Date: 20081020
  Transmission Date: 20090506
  Serious: Yes (Hospitalization)
  Sender: FDA-Public Use
  Company Number: FR-BRISTOL-MYERS SQUIBB COMPANY-13225453

PATIENT
  Age: 44 Year
  Sex: Male
  Weight: 56 kg

DRUGS (5)
  1. SUSTIVA [Suspect]
     Route: 048
     Dates: end: 20010101
  2. COMBIVIR [Suspect]
     Dates: end: 20010101
  3. VIRAFERONPEG [Suspect]
     Dates: end: 20010101
  4. DAPSONE [Concomitant]
     Dates: end: 20010420
  5. ALDACTONE [Concomitant]

REACTIONS (6)
  - ALANINE AMINOTRANSFERASE INCREASED [None]
  - ASPARTATE AMINOTRANSFERASE INCREASED [None]
  - BLOOD BILIRUBIN INCREASED [None]
  - LUNG DISORDER [None]
  - PANCREATITIS [None]
  - RENAL FAILURE [None]
